FAERS Safety Report 24063946 (Version 2)
Quarter: 2024Q3

REPORT INFORMATION
  Report Type: Report from Study
  Country: US (occurrence: US)
  Receive Date: 20240709
  Receipt Date: 20240814
  Transmission Date: 20241016
  Serious: Yes (Other)
  Sender: ROCHE
  Company Number: US-ROCHE-10000015318

PATIENT

DRUGS (7)
  1. XOLAIR [Suspect]
     Active Substance: OMALIZUMAB
     Indication: Product used for unknown indication
     Route: 065
  2. XYZAL [Concomitant]
     Active Substance: LEVOCETIRIZINE DIHYDROCHLORIDE
  3. PEPCID [Concomitant]
     Active Substance: FAMOTIDINE
  4. KETOTIFEN [Concomitant]
     Active Substance: KETOTIFEN
  5. SINGULAIR [Concomitant]
     Active Substance: MONTELUKAST SODIUM
  6. ATARAX [Concomitant]
     Active Substance: HYDROXYZINE HYDROCHLORIDE
  7. PREDNISONE [Concomitant]
     Active Substance: PREDNISONE

REACTIONS (9)
  - Anaphylactic reaction [Unknown]
  - Erythema [Unknown]
  - Heart rate increased [Unknown]
  - Gastrointestinal disorder [Unknown]
  - Abdominal pain [Unknown]
  - Tremor [Unknown]
  - Pharyngeal swelling [Unknown]
  - Eye swelling [Unknown]
  - Swollen tongue [Unknown]
